FAERS Safety Report 4467144-X (Version None)
Quarter: 2004Q4

REPORT INFORMATION
  Report Type: 
  Country: None (occurrence: None)
  Receive Date: 20041004
  Receipt Date: 20041004
  Transmission Date: 20050328
  Serious: Yes (Other)
  Sender: FDA-Public Use
  Company Number: None

PATIENT

DRUGS (1)
  1. FLUTAMIDE [Suspect]
     Indication: VIRILISM
     Dosage: 250 MGM BID
     Dates: start: 20040823

REACTIONS (1)
  - HEADACHE [None]
